FAERS Safety Report 17599821 (Version 1)
Quarter: 2020Q1

REPORT INFORMATION
  Report Type: Spontaneous
  Country: AT (occurrence: AT)
  Receive Date: 20200330
  Receipt Date: 20200330
  Transmission Date: 20200409
  Serious: Yes (Hospitalization)
  Sender: FDA-Public Use
  Company Number: AT-SA-2018SA181723

PATIENT
  Age: 75 Year
  Sex: Female
  Weight: 105 kg

DRUGS (25)
  1. XGEVA [Suspect]
     Active Substance: DENOSUMAB
     Indication: BREAST CANCER
     Route: 058
     Dates: start: 20171109
  2. VOLTAREN [DICLOFENAC] [Concomitant]
     Active Substance: DICLOFENAC SODIUM
     Dates: start: 20171215
  3. CONCOR [Concomitant]
     Active Substance: BISOPROLOL FUMARATE
  4. HYDAL [Concomitant]
     Active Substance: HYDROMORPHONE HYDROCHLORIDE
     Dosage: UNK
     Dates: start: 20180307
  5. NOVALGIN (METAMIZOLE SODIUM) [Concomitant]
     Active Substance: METAMIZOLE SODIUM
     Dates: start: 20171215
  6. LASILACTON [Concomitant]
     Active Substance: FUROSEMIDE\SPIRONOLACTONE
     Dates: start: 20180101, end: 20180329
  7. MAGNOSOLV [Concomitant]
     Dates: start: 20171115
  8. CALCIDURAN [Concomitant]
     Active Substance: ASCORBIC ACID\CALCIUM PHOSPHATE\CHOLECALCIFEROL\CITRIC ACID MONOHYDRATE
     Dates: start: 20171115
  9. ZOFRAN [Concomitant]
     Active Substance: ONDANSETRON HYDROCHLORIDE
     Dosage: UNK
     Dates: start: 20171115
  10. HYDAL [Concomitant]
     Active Substance: HYDROMORPHONE HYDROCHLORIDE
     Dosage: UNK
     Dates: start: 20171115
  11. THYREX [Concomitant]
     Active Substance: LEVOTHYROXINE SODIUM
     Route: 065
  12. ERYPO [EPOETIN ALFA] [Concomitant]
     Indication: ANAEMIA
     Dates: start: 20180329
  13. PANTOLOC [PANTOPRAZOLE] [Concomitant]
     Active Substance: PANTOPRAZOLE SODIUM
     Dates: start: 20171113
  14. TRANSTEC [Concomitant]
     Active Substance: BUPRENORPHINE
     Dates: start: 20171227
  15. PERTUZUMAB. [Suspect]
     Active Substance: PERTUZUMAB
     Indication: BREAST CANCER
     Dosage: MOST RECENT DOSE PRIOR TO THE EVENT: 03/JAN/2018
     Route: 042
     Dates: start: 20171113
  16. FORTECORTIN CAMPUS [Concomitant]
     Dosage: ONGOING = NOT CHECKED
     Dates: start: 20171113, end: 20180329
  17. DRONABINOL. [Concomitant]
     Active Substance: DRONABINOL
     Route: 065
     Dates: start: 20180321, end: 20180329
  18. DOCETAXEL. [Suspect]
     Active Substance: DOCETAXEL
     Dosage: 60 MG/M2, Q3W
     Route: 042
     Dates: start: 20171113
  19. TRASTUZUMAB. [Suspect]
     Active Substance: TRASTUZUMAB
     Dosage: MOST RECENT DOSE PRIOR TO THE EVENT: 03/JAN/2018
     Route: 042
     Dates: start: 20171113
  20. LONQUEX [Concomitant]
     Active Substance: LIPEGFILGRASTIM
     Dates: start: 20171113, end: 20180329
  21. LASIX [Concomitant]
     Active Substance: FUROSEMIDE
     Dates: start: 20180329
  22. DIBONDRIN [Concomitant]
     Active Substance: DIPHENHYDRAMINE HYDROCHLORIDE
     Dates: start: 20171113
  23. PACLITAXEL. [Suspect]
     Active Substance: PACLITAXEL
     Dosage: MOST RECENT DOSE PRIOR TO THE EVENT 07/MAR/2018
     Route: 042
     Dates: start: 20180103
  24. ZOFRAN [Concomitant]
     Active Substance: ONDANSETRON HYDROCHLORIDE
     Dates: start: 20171113, end: 20180307
  25. GLANDOMED [Concomitant]
     Dates: start: 20171115

REACTIONS (1)
  - Nocturnal dyspnoea [Unknown]

NARRATIVE: CASE EVENT DATE: 20180404
